FAERS Safety Report 16336786 (Version 1)
Quarter: 2019Q2

REPORT INFORMATION
  Report Type: Spontaneous
  Country: US (occurrence: US)
  Receive Date: 20190521
  Receipt Date: 20190521
  Transmission Date: 20190711
  Serious: Yes (Other)
  Sender: FDA-Public Use
  Company Number: US-RECKITT BENCKISER HEALTHCARE INT LIMITED-RB-85455-2019

PATIENT
  Age: 60 Year
  Sex: Male

DRUGS (1)
  1. OXYMETAZOLINE HYDROCHLORIDE. [Suspect]
     Active Substance: OXYMETAZOLINE HYDROCHLORIDE
     Indication: PRODUCT USED FOR UNKNOWN INDICATION
     Dosage: UNK, QID, USED UNKNOWN AMOUNT AT QID FREQUENCY
     Route: 065

REACTIONS (8)
  - Anosmia [Unknown]
  - Mantle cell lymphoma [Unknown]
  - Sinonasal papilloma [Unknown]
  - Nasal obstruction [Unknown]
  - Polyp [Unknown]
  - Lip disorder [Unknown]
  - Epistaxis [Unknown]
  - Lacrimal disorder [Unknown]
